FAERS Safety Report 12492830 (Version 1)
Quarter: 2016Q2

REPORT INFORMATION
  Report Type: Spontaneous
  Country: US (occurrence: None)
  Receive Date: 20160623
  Receipt Date: 20160623
  Transmission Date: 20160815
  Serious: Yes (Other)
  Sender: FDA-Public Use
  Company Number: None

PATIENT
  Age: 69 Year
  Sex: Female
  Weight: 74.84 kg

DRUGS (16)
  1. EPIPEN [Concomitant]
     Active Substance: EPINEPHRINE
  2. LASIX [Concomitant]
     Active Substance: FUROSEMIDE
  3. LIDOCAINE/PRILOCAINE [Concomitant]
     Active Substance: LIDOCAINE\PRILOCAINE
  4. DEPAKOTE [Concomitant]
     Active Substance: DIVALPROEX SODIUM
  5. NORVASC [Concomitant]
     Active Substance: AMLODIPINE BESYLATE
  6. TRIAMCINOLONE ACETONIDE. [Concomitant]
     Active Substance: TRIAMCINOLONE ACETONIDE
  7. HYQVIA [Suspect]
     Active Substance: HUMAN IMMUNOGLOBULIN G\HYALURONIDASE RECOMBINANT HUMAN
     Indication: IMMUNODEFICIENCY COMMON VARIABLE
     Route: 058
     Dates: start: 20160502, end: 20160531
  8. XOPENEX [Concomitant]
     Active Substance: LEVALBUTEROL HYDROCHLORIDE
  9. HYQVIA [Suspect]
     Active Substance: HUMAN IMMUNOGLOBULIN G\HYALURONIDASE RECOMBINANT HUMAN
     Indication: IMMUNODEFICIENCY COMMON VARIABLE
     Route: 058
     Dates: start: 20160502, end: 20160531
  10. MVI [Concomitant]
     Active Substance: VITAMINS
  11. COMBIVENT [Concomitant]
     Active Substance: ALBUTEROL SULFATE\IPRATROPIUM BROMIDE
  12. METOPROLOL SUC ER [Concomitant]
  13. NITROSTAT [Concomitant]
     Active Substance: NITROGLYCERIN
  14. XANAX [Concomitant]
     Active Substance: ALPRAZOLAM
  15. PLAVIX [Concomitant]
     Active Substance: CLOPIDOGREL BISULFATE
  16. SUCRALFATE. [Concomitant]
     Active Substance: SUCRALFATE

REACTIONS (1)
  - Mouth ulceration [None]

NARRATIVE: CASE EVENT DATE: 20160531
